FAERS Safety Report 5256578-1 (Version None)
Quarter: 2007Q1

REPORT INFORMATION
  Report Type: 
  Country: None (occurrence: None)
  Receive Date: 20070306
  Receipt Date: 20070226
  Transmission Date: 20070707
  Serious: Yes (Hospitalization)
  Sender: FDA-Public Use
  Company Number: 2007AC00352

PATIENT
  Age: 673 Month
  Sex: Female
  Weight: 80 kg

DRUGS (1)
  1. ARIMIDEX [Suspect]
     Indication: BREAST CANCER
     Route: 048
     Dates: start: 20041224

REACTIONS (1)
  - MEDICAL DEVICE COMPLICATION [None]
